FAERS Safety Report 11807470 (Version 2)
Quarter: 2015Q4

REPORT INFORMATION
  Report Type: Spontaneous
  Country: JP (occurrence: JP)
  Receive Date: 20151207
  Receipt Date: 20151230
  Transmission Date: 20160305
  Serious: Yes (Other)
  Sender: FDA-Public Use
  Company Number: JP-MALLINCKRODT-T201403542

PATIENT
  Age: 73 Year
  Sex: Male
  Weight: 50 kg

DRUGS (28)
  1. METHADONE [Suspect]
     Active Substance: METHADONE HYDROCHLORIDE
     Dosage: 20 MG, (60 MG DAILY DOSE)
     Route: 048
     Dates: start: 20140828, end: 20141209
  2. FENTOS [Concomitant]
     Active Substance: FENTANYL
     Dosage: 4 MG, UNK
     Route: 062
     Dates: start: 20140227, end: 20140327
  3. AMITIZA [Concomitant]
     Active Substance: LUBIPROSTONE
     Dosage: 48 MG, UNK
     Route: 048
     Dates: start: 20130815, end: 20141217
  4. MEDICON [Concomitant]
     Active Substance: DEXTROMETHORPHAN HYDROBROMIDE
     Dosage: 45 MG, UNK
     Route: 048
     Dates: end: 20141213
  5. METHADONE [Suspect]
     Active Substance: METHADONE HYDROCHLORIDE
     Dosage: 25 MG (75 MG DAILY DOSE)
     Route: 048
     Dates: start: 20140529, end: 20140604
  6. INLYTA [Concomitant]
     Active Substance: AXITINIB
     Dosage: 10 MG, UNK
     Route: 048
     Dates: start: 20130411, end: 20141217
  7. MAGNESIUM OXIDE. [Concomitant]
     Active Substance: MAGNESIUM OXIDE
     Dosage: 1320 MG, UNK
     Route: 048
     Dates: end: 20141217
  8. PURSENNID [Concomitant]
     Active Substance: SENNOSIDES A AND B
     Dosage: 24 MG, UNK
     Route: 048
     Dates: end: 20141217
  9. METHADONE [Suspect]
     Active Substance: METHADONE HYDROCHLORIDE
     Dosage: 20 MG (60 MG DAILY DOSE)
     Route: 048
     Dates: start: 20140522, end: 20140528
  10. CYMBALTA [Suspect]
     Active Substance: DULOXETINE HYDROCHLORIDE
     Dosage: 20 MG
     Route: 048
     Dates: start: 20140129, end: 20141217
  11. CYMBALTA [Suspect]
     Active Substance: DULOXETINE HYDROCHLORIDE
     Indication: PRODUCT USED FOR UNKNOWN INDICATION
     Dosage: 40 MG
     Route: 048
     Dates: start: 20130214, end: 20140128
  12. DECADRON [Concomitant]
     Active Substance: DEXAMETHASONE
     Indication: ANALGESIC THERAPY
     Dosage: 1.5 MG, UNK
     Route: 048
     Dates: start: 20130718, end: 20140723
  13. HARNAL OCAS [Concomitant]
     Active Substance: TAMSULOSIN HYDROCHLORIDE
     Dosage: 0.2 MG, UNK
     Route: 048
     Dates: start: 20130912, end: 20141217
  14. WYPAX [Suspect]
     Active Substance: LORAZEPAM
     Indication: PRODUCT USED FOR UNKNOWN INDICATION
     Dosage: 1 MG
     Route: 048
     Dates: start: 20120906, end: 20140820
  15. AMLODIPIN [Concomitant]
     Active Substance: AMLODIPINE BESYLATE
     Dosage: 2.5 MG, UNK
     Route: 048
     Dates: end: 20141217
  16. WYPAX [Suspect]
     Active Substance: LORAZEPAM
     Dosage: 0.5 MG
     Route: 048
     Dates: start: 20140821, end: 20141217
  17. FENTOS [Concomitant]
     Active Substance: FENTANYL
     Dosage: 8 MG
     Route: 062
     Dates: start: 20121011, end: 20140227
  18. FENTOS [Concomitant]
     Active Substance: FENTANYL
     Dosage: 4 MG, UNK
     Route: 062
     Dates: start: 20140626, end: 20141217
  19. DECADRON [Concomitant]
     Active Substance: DEXAMETHASONE
     Dosage: 0.5 MG
     Route: 048
     Dates: start: 20141209, end: 20141217
  20. MUCODYNE [Concomitant]
     Active Substance: CARBOCYSTEINE
     Dosage: 1500 MG, UNK
     Route: 048
     Dates: end: 20141213
  21. GENINAX [Concomitant]
     Active Substance: GARENOXACIN MESYLATE
     Dosage: 400 MG, UNK
     Route: 048
     Dates: end: 20141217
  22. METHADONE [Suspect]
     Active Substance: METHADONE HYDROCHLORIDE
     Dosage: 20 MG, (40 MG DAILY DOSE)
     Route: 048
     Dates: start: 20141210, end: 20141217
  23. SEROQUEL [Suspect]
     Active Substance: QUETIAPINE FUMARATE
     Indication: PRODUCT USED FOR UNKNOWN INDICATION
     Dosage: 25 MG
     Route: 048
     Dates: start: 20131010, end: 20141217
  24. FENTOS [Concomitant]
     Active Substance: FENTANYL
     Dosage: 8 MG, UNK
     Route: 062
     Dates: start: 20140327, end: 20140528
  25. LOXONIN [Concomitant]
     Active Substance: LOXOPROFEN SODIUM
     Dosage: 180 MG, UNK
     Route: 048
     Dates: end: 20141217
  26. METHADONE [Suspect]
     Active Substance: METHADONE HYDROCHLORIDE
     Indication: CANCER PAIN
     Dosage: 15 MG (45 MG DAILY DOSE)
     Route: 048
     Dates: start: 20140116, end: 20140521
  27. METHADONE [Suspect]
     Active Substance: METHADONE HYDROCHLORIDE
     Dosage: 20 MG  (60 MG DAILY DOSE)
     Route: 048
     Dates: start: 20140605, end: 20140806
  28. METHADONE [Suspect]
     Active Substance: METHADONE HYDROCHLORIDE
     Dosage: 25 MG, (50 MG DAILY DOSE)
     Route: 048
     Dates: start: 20140807, end: 20140827

REACTIONS (3)
  - Somnolence [Recovered/Resolved]
  - Somnolence [Recovering/Resolving]
  - Duodenal ulcer perforation [Recovered/Resolved]

NARRATIVE: CASE EVENT DATE: 20140605
